FAERS Safety Report 9882556 (Version 1)
Quarter: 2014Q1

REPORT INFORMATION
  Report Type: Spontaneous
  Country: US (occurrence: US)
  Receive Date: 20140207
  Receipt Date: 20140207
  Transmission Date: 20141002
  Serious: Yes (Other)
  Sender: FDA-Public Use
  Company Number: US-ACTAVIS-2014-01586

PATIENT
  Sex: Male
  Weight: 48 kg

DRUGS (1)
  1. NORCO 7.5/325 [Suspect]
     Indication: PAIN
     Dosage: UNK, UNKNOWN
     Route: 065

REACTIONS (8)
  - Suicidal ideation [Unknown]
  - Cerebrovascular accident [Unknown]
  - Malaise [Unknown]
  - Vomiting [Unknown]
  - Dizziness [Unknown]
  - Loss of consciousness [Unknown]
  - Pain [Unknown]
  - Apparent death [Unknown]
